FAERS Safety Report 12950529 (Version 1)
Quarter: 2016Q4

REPORT INFORMATION
  Report Type: Spontaneous
  Country: US (occurrence: US)
  Receive Date: 20161117
  Receipt Date: 20161117
  Transmission Date: 20170207
  Serious: Yes (Hospitalization)
  Sender: FDA-Public Use
  Company Number: None

PATIENT
  Sex: Male
  Weight: 110.7 kg

DRUGS (20)
  1. DECLATASVIR 60 MG [Suspect]
     Active Substance: DACLATASVIR
     Indication: HEPATITIS C
     Route: 048
     Dates: start: 20160407, end: 20160922
  2. ERGOCALCIFEROL. [Concomitant]
     Active Substance: ERGOCALCIFEROL
  3. NPH INSULIN [Concomitant]
     Active Substance: INSULIN BEEF
  4. GABAPENTIN. [Concomitant]
     Active Substance: GABAPENTIN
  5. RIFAXIMIN [Concomitant]
     Active Substance: RIFAXIMIN
  6. SOFOSBUVIR 400 MG [Suspect]
     Active Substance: SOFOSBUVIR
     Indication: HEPATITIS C
     Route: 048
     Dates: start: 20160407, end: 20160922
  7. INSULIN REGULAR [Concomitant]
     Active Substance: INSULIN NOS
  8. LACTULOSE. [Concomitant]
     Active Substance: LACTULOSE
  9. TYLENOL [Concomitant]
     Active Substance: ACETAMINOPHEN
  10. METOPROLOL. [Concomitant]
     Active Substance: METOPROLOL
  11. LASIX [Concomitant]
     Active Substance: FUROSEMIDE
  12. LIPITOR [Concomitant]
     Active Substance: ATORVASTATIN CALCIUM
  13. POTASSIUM [Concomitant]
     Active Substance: POTASSIUM
  14. NORCO [Concomitant]
     Active Substance: ACETAMINOPHEN\HYDROCODONE BITARTRATE
  15. LISINOPRIL. [Concomitant]
     Active Substance: LISINOPRIL
  16. PLAVIX [Concomitant]
     Active Substance: CLOPIDOGREL BISULFATE
  17. ATENOLOL. [Concomitant]
     Active Substance: ATENOLOL
  18. HYTRIN [Concomitant]
     Active Substance: TERAZOSIN HYDROCHLORIDE
  19. PROTONIX [Concomitant]
     Active Substance: PANTOPRAZOLE SODIUM
  20. SPIRONOLACTONE. [Concomitant]
     Active Substance: SPIRONOLACTONE

REACTIONS (1)
  - Cellulitis [None]

NARRATIVE: CASE EVENT DATE: 20160817
